FAERS Safety Report 9164924 (Version 3)
Quarter: 2013Q2

REPORT INFORMATION
  Report Type: Spontaneous
  Country: DE (occurrence: DE)
  Receive Date: 20130315
  Receipt Date: 20130415
  Transmission Date: 20140414
  Serious: Yes (Other)
  Sender: FDA-Public Use
  Company Number: DE-PFIZER INC-2013082998

PATIENT
  Age: 43 Year
  Sex: Female
  Weight: 74 kg

DRUGS (3)
  1. LYRICA [Suspect]
     Indication: ANXIETY DISORDER
     Dosage: 125 MG, 1X/DAY
     Route: 048
     Dates: start: 20130214
  2. LYRICA [Suspect]
     Dosage: 75 MG, 1X/DAY
     Dates: start: 2013
  3. CITALOPRAM [Concomitant]
     Indication: DEPRESSION
     Dosage: 40 UNK, DAILY
     Route: 048
     Dates: start: 201210

REACTIONS (9)
  - Swollen tongue [Recovered/Resolved]
  - Oedema peripheral [Recovered/Resolved]
  - Swelling face [Recovered/Resolved]
  - Strabismus [Recovered/Resolved]
  - Dry throat [Recovered/Resolved]
  - Constipation [Not Recovered/Not Resolved]
  - Loss of libido [Recovered/Resolved]
  - Dizziness [Recovered/Resolved]
  - Dizziness [Recovering/Resolving]
